FAERS Safety Report 8767061 (Version 1)
Quarter: 2012Q4

REPORT INFORMATION
  Report Type: 
  Country: GB (occurrence: GB)
  Receive Date: 20120904
  Receipt Date: 20120904
  Transmission Date: 20130627
  Serious: Yes (Hospitalization)
  Sender: FDA-Public Use
  Company Number: PHHO2012GB008630

PATIENT
  Age: 74 Year
  Sex: Male

DRUGS (7)
  1. AMIODARONE [Suspect]
     Dosage: 100 mg, UNK
     Route: 048
     Dates: start: 19920305
  2. CISPLATIN [Suspect]
     Dosage: 140 mg, UNK
     Route: 042
     Dates: start: 20120404, end: 20120404
  3. TAMSULOSIN [Suspect]
     Dosage: 400 mg, UNK
     Route: 048
     Dates: start: 20110404, end: 20120423
  4. SUTENT [Concomitant]
     Indication: TRANSITIONAL CELL CARCINOMA
     Dosage: 25 mg, UNK
     Dates: start: 20120404, end: 20120408
  5. GEMCITABINE [Concomitant]
     Dosage: 2000 mg, UNK
     Route: 042
     Dates: start: 20120404, end: 20120404
  6. CIPROFLOXACIN [Concomitant]
     Dosage: 50 mg, UNK
     Route: 048
     Dates: start: 20120330, end: 20120406
  7. NITROFURANTOIN [Concomitant]
     Dosage: 100 mg, UNK
     Dates: start: 20120401, end: 20120408

REACTIONS (2)
  - Autonomic neuropathy [Recovered/Resolved]
  - Orthostatic hypotension [Recovered/Resolved]
